FAERS Safety Report 4933969-7 (Version None)
Quarter: 2006Q1

REPORT INFORMATION
  Report Type: 
  Country: None (occurrence: None)
  Receive Date: 20060303
  Receipt Date: 20060216
  Transmission Date: 20060701
  Serious: Yes (Hospitalization)
  Sender: FDA-Public Use
  Company Number: FR-2006-003202

PATIENT
  Age: 85 Year
  Sex: Male
  Weight: 70 kg

DRUGS (3)
  1. FLUDARA [Suspect]
     Indication: CHRONIC LYMPHOCYTIC LEUKAEMIA
     Dosage: 35 CAP(S), CYCLES, ORAL
     Route: 048
     Dates: start: 20050515, end: 20050923
  2. BACTRIM [Suspect]
     Dosage: ORAL
     Route: 048
     Dates: start: 20050615, end: 20051115
  3. ALLOPURINOL [Suspect]
     Dosage: 300 MG, ORAL
     Route: 048
     Dates: start: 20050615, end: 20051115

REACTIONS (5)
  - DERMATITIS CONTACT [None]
  - ECZEMA [None]
  - PRURIGO [None]
  - TOXIC SKIN ERUPTION [None]
  - URTICARIA [None]
